FAERS Safety Report 10018645 (Version 3)
Quarter: 2014Q2

REPORT INFORMATION
  Report Type: Report from Study
  Country: US (occurrence: US)
  Receive Date: 20140318
  Receipt Date: 20140422
  Transmission Date: 20141212
  Serious: Yes (Hospitalization)
  Sender: FDA-Public Use
  Company Number: US-UCBSA-114631

PATIENT
  Age: 16 Year
  Sex: Male
  Weight: 79.1 kg

DRUGS (5)
  1. LACOSAMIDE [Suspect]
     Indication: EPILEPSY
     Route: 048
     Dates: start: 20140228, end: 20140314
  2. LACOSAMIDE [Suspect]
     Indication: EPILEPSY
     Dosage: 200 MG PER DAY
     Route: 048
     Dates: start: 20140220, end: 20140228
  3. LACOSAMIDE [Suspect]
     Indication: EPILEPSY
     Dosage: 100 MG PER DAY
     Route: 048
     Dates: start: 20140214, end: 20140220
  4. LEVETIRACETAM [Concomitant]
     Indication: EPILEPSY
     Route: 048
     Dates: start: 20140122
  5. OXCARBAZEPINE [Concomitant]
     Route: 048
     Dates: start: 201310

REACTIONS (1)
  - Convulsion [Recovered/Resolved]
